FAERS Safety Report 16472770 (Version 1)
Quarter: 2019Q2

REPORT INFORMATION
  Report Type: Spontaneous
  Country: GB (occurrence: GB)
  Receive Date: 20190625
  Receipt Date: 20190625
  Transmission Date: 20190711
  Serious: Yes (Other)
  Sender: FDA-Public Use
  Company Number: GB-TEVA-2019-GB-1067225

PATIENT
  Age: 78 Year
  Sex: Female
  Weight: 68 kg

DRUGS (4)
  1. GABAPENTIN. [Concomitant]
     Active Substance: GABAPENTIN
  2. DICLOFENAC SODIUM. [Suspect]
     Active Substance: DICLOFENAC SODIUM
     Indication: MUSCLE INJURY
     Dosage: AS RECOMMENDED ON BOX, DETAILS NOT RECALLED.
     Route: 048
     Dates: start: 201808, end: 201811
  3. COCODAMOL [Concomitant]
     Active Substance: ACETAMINOPHEN\CODEINE PHOSPHATE
  4. AMITRIPTYLINE [Concomitant]
     Active Substance: AMITRIPTYLINE

REACTIONS (4)
  - Incontinence [Unknown]
  - Weight decreased [Unknown]
  - Diarrhoea [Recovered/Resolved with Sequelae]
  - Colitis microscopic [Unknown]

NARRATIVE: CASE EVENT DATE: 20180818
